FAERS Safety Report 24622814 (Version 1)
Quarter: 2024Q4

REPORT INFORMATION
  Report Type: Spontaneous
  Country: ZA (occurrence: ZA)
  Receive Date: 20241115
  Receipt Date: 20241115
  Transmission Date: 20250115
  Serious: Yes (Other)
  Sender: AMGEN
  Company Number: ZA-SERVIER-S24014470

PATIENT
  Age: 63 Year
  Sex: Male

DRUGS (18)
  1. IVABRADINE HYDROCHLORIDE [Suspect]
     Active Substance: IVABRADINE HYDROCHLORIDE
     Indication: Angina pectoris
     Dosage: 5 MG TAKE ONE TABLET DAILY
     Route: 048
  2. ACETAMINOPHEN\TRAMADOL [Concomitant]
     Active Substance: ACETAMINOPHEN\TRAMADOL
     Indication: Pain
     Dosage: TWO TABLETS TWICE A DAY
     Route: 048
  3. Adco Zolpidem Hemitatrate [Concomitant]
     Indication: Insomnia
     Dosage: 10 MG TWO TABLETS AT NIGHT
     Route: 048
  4. DAPAGLIFLOZIN [Concomitant]
     Active Substance: DAPAGLIFLOZIN
     Indication: Diabetes mellitus
     Dosage: 10 MG ONE TABLET DAILY
     Route: 048
  5. ECOTRIN [Concomitant]
     Active Substance: ASPIRIN
     Indication: Anticoagulant therapy
     Dosage: 81 MG ONE TABLET DAILY
     Route: 048
  6. Allergex [Concomitant]
     Indication: Hypersensitivity
     Dosage: 4 MG ONE TABLET WHEN NECESSARY
     Route: 048
  7. Allergex [Concomitant]
     Dosage: 4 MG 1-2 TABLET(S) THREE TIMES A DAY
     Route: 048
  8. Nazene [Concomitant]
     Indication: Product used for unknown indication
     Dosage: AS DIRECTED
     Route: 045
  9. LOSARTAN POTASSIUM [Concomitant]
     Active Substance: LOSARTAN POTASSIUM
     Indication: Hypertension
     Dosage: 500 MG TAKE ONE TABLET DAILY
     Route: 048
  10. ISMO [Concomitant]
     Active Substance: ISOSORBIDE MONONITRATE
     Indication: Angina pectoris
     Dosage: 20 MG HALF A TABLET TWICE A DAY
     Route: 048
  11. ESCITALOPRAM [Concomitant]
     Active Substance: ESCITALOPRAM OXALATE
     Indication: Depression
     Dosage: 10 MG ONE TABLET IN THE
     Route: 048
  12. FUROSEMIDE [Concomitant]
     Active Substance: FUROSEMIDE
     Indication: Hypertension
     Dosage: 40 MG TAKE ONE TABLET DAILY
     Route: 048
  13. Spiractin [Concomitant]
     Indication: Hypertension
     Dosage: 25 MG ONE TABLET DAILY
     Route: 048
  14. ANDOLEX C [Concomitant]
     Indication: Product used for unknown indication
     Dosage: AS DIRECTED
     Route: 048
  15. ACETAMINOPHEN [Concomitant]
     Active Substance: ACETAMINOPHEN
     Indication: Product used for unknown indication
     Dosage: 500 MG AS DIRECTED
     Route: 048
  16. ILIADIN [Concomitant]
     Indication: Product used for unknown indication
     Dosage: 0.5 MG AS DIRECTED
     Route: 045
  17. ZOLPIDEM TARTRATE [Concomitant]
     Active Substance: ZOLPIDEM TARTRATE
     Indication: Insomnia
     Dosage: 10 MG ONE TABLET AT NIGHT
     Route: 048
  18. K fenak [Concomitant]
     Indication: Product used for unknown indication
     Dosage: 50 MG ONE TABLET WHEN NECESSARY
     Route: 048

REACTIONS (2)
  - Hepatic failure [Unknown]
  - Illness [Unknown]
